FAERS Safety Report 21732767 (Version 1)
Quarter: 2022Q4

REPORT INFORMATION
  Report Type: Spontaneous
  Country: CN (occurrence: CN)
  Receive Date: 20221215
  Receipt Date: 20221215
  Transmission Date: 20230113
  Serious: Yes (Other)
  Sender: FDA-Public Use
  Company Number: CN-JNJFOC-20221217253

PATIENT
  Age: 51 Year
  Sex: Female

DRUGS (4)
  1. ULTRACET [Suspect]
     Active Substance: ACETAMINOPHEN\TRAMADOL HYDROCHLORIDE
     Indication: Intervertebral disc protrusion
     Route: 048
     Dates: start: 20221121, end: 20221122
  2. ULTRACET [Suspect]
     Active Substance: ACETAMINOPHEN\TRAMADOL HYDROCHLORIDE
     Indication: Myelopathy
  3. ETORICOXIB [Concomitant]
     Active Substance: ETORICOXIB
     Indication: Intervertebral disc protrusion
     Route: 048
     Dates: start: 20221119, end: 20221124
  4. ETORICOXIB [Concomitant]
     Active Substance: ETORICOXIB
     Indication: Myelopathy

REACTIONS (4)
  - Dizziness [Recovered/Resolved]
  - Nausea [Recovered/Resolved]
  - Vomiting [Recovered/Resolved]
  - Agitation [Recovered/Resolved]

NARRATIVE: CASE EVENT DATE: 20221122
